FAERS Safety Report 14113892 (Version 1)
Quarter: 2017Q4

REPORT INFORMATION
  Report Type: Spontaneous
  Country: GB (occurrence: GB)
  Receive Date: 20171023
  Receipt Date: 20171023
  Transmission Date: 20180321
  Serious: Yes (Hospitalization, Other)
  Sender: FDA-Public Use
  Company Number: GB-ACCORD-059967

PATIENT
  Age: 69 Year
  Sex: Female
  Weight: 44.45 kg

DRUGS (6)
  1. SERETIDE [Concomitant]
     Active Substance: FLUTICASONE PROPIONATE\SALMETEROL XINAFOATE
  2. TIOTROPIUM [Concomitant]
     Active Substance: TIOTROPIUM
  3. RAMIPRIL. [Concomitant]
     Active Substance: RAMIPRIL
     Dosage: ADDED AS INPATIENT.
  4. SERTRALINE [Suspect]
     Active Substance: SERTRALINE HYDROCHLORIDE
     Indication: PRODUCT USED FOR UNKNOWN INDICATION
     Dosage: MORNING
     Route: 048
  5. FUROSEMIDE. [Suspect]
     Active Substance: FUROSEMIDE
     Indication: PRODUCT USED FOR UNKNOWN INDICATION
     Dosage: 80MG IN THE MORNING (OM) LONG TERM THEN 40MG OM FOR 3 DAYS PRIOR TO ADMISSION.
     Route: 048
  6. SALBUTAMOL [Concomitant]
     Active Substance: ALBUTEROL

REACTIONS (1)
  - Hyponatraemia [Recovered/Resolved]

NARRATIVE: CASE EVENT DATE: 20141104
